FAERS Safety Report 22591879 (Version 1)
Quarter: 2023Q2

REPORT INFORMATION
  Report Type: Spontaneous
  Country: US (occurrence: US)
  Receive Date: 20230612
  Receipt Date: 20230612
  Transmission Date: 20230721
  Serious: Yes (Other)
  Sender: FDA-Public Use
  Company Number: US-PRINSTON PHARMACEUTICAL INC.-2023PRN00276

PATIENT
  Age: 50 Year
  Sex: Female
  Weight: 67.574 kg

DRUGS (3)
  1. ARIPIPRAZOLE [Suspect]
     Active Substance: ARIPIPRAZOLE
     Indication: Schizophrenia
     Dosage: 15 MG, 2X/DAY
  2. ARIPIPRAZOLE [Suspect]
     Active Substance: ARIPIPRAZOLE
     Dosage: 15 MG, 2X/DAY
  3. ARIPIPRAZOLE [Suspect]
     Active Substance: ARIPIPRAZOLE
     Dosage: UNK

REACTIONS (10)
  - Conjunctival haemorrhage [Unknown]
  - Formication [Unknown]
  - Eye allergy [Unknown]
  - Metabolic disorder [Unknown]
  - Unevaluable event [Unknown]
  - Sneezing [Unknown]
  - Hyperphagia [Unknown]
  - Constipation [Unknown]
  - Weight increased [Unknown]
  - Product substitution issue [Unknown]

NARRATIVE: CASE EVENT DATE: 20220712
